FAERS Safety Report 5108480-3 (Version None)
Quarter: 2006Q3

REPORT INFORMATION
  Report Type: 
  Country: None (occurrence: None)
  Receive Date: 20060731
  Receipt Date: 20060524
  Transmission Date: 20061208
  Serious: No
  Sender: FDA-Public Use
  Company Number: 2006PV014436

PATIENT
  Age: 58 Year
  Sex: Female
  Weight: 99.7913 kg

DRUGS (5)
  1. BYETTA [Suspect]
     Indication: GLUCOSE TOLERANCE IMPAIRED
     Dosage: 5 MCG;BID;SC
     Route: 058
     Dates: start: 20060517, end: 20060523
  2. ACTOS/USA [Concomitant]
  3. CLARINEX [Concomitant]
  4. NASAL SPRAY [Concomitant]
  5. ANTIBIOTIC [Concomitant]

REACTIONS (2)
  - EYE PAIN [None]
  - HEADACHE [None]
